FAERS Safety Report 8828949 (Version 1)
Quarter: 2012Q4

REPORT INFORMATION
  Report Type: 
  Country: US (occurrence: US)
  Receive Date: 20121009
  Receipt Date: 20121009
  Transmission Date: 20130627
  Serious: Yes (Hospitalization)
  Sender: FDA-Public Use
  Company Number: US-009507513-1210USA002911

PATIENT
  Age: 54 Year
  Sex: Male
  Weight: 53.6 kg

DRUGS (6)
  1. VORINOSTAT [Suspect]
     Indication: DIFFUSE LARGE B-CELL LYMPHOMA
     Dosage: 400 mg, qd, on 1-5 days of each 21-day cycle
     Route: 048
     Dates: start: 20120915, end: 20120919
  2. RITUXIMAB [Suspect]
     Indication: DIFFUSE LARGE B-CELL LYMPHOMA
     Dosage: 375 mg/m2, Once, on day 3 of each 21-day cycle
     Route: 042
     Dates: start: 20120917, end: 20120917
  3. CYCLOPHOSPHAMIDE [Suspect]
     Indication: DIFFUSE LARGE B-CELL LYMPHOMA
     Dosage: 750 mg/m2, Once, over 30-60 minites on day 3
     Route: 042
     Dates: start: 20120917, end: 20120917
  4. DOXORUBICIN [Suspect]
     Indication: DIFFUSE LARGE B-CELL LYMPHOMA
     Dosage: 50 mg/m2, Once, on day 3
     Route: 042
     Dates: start: 20120917, end: 20120917
  5. VINCRISTINE SULFATE [Suspect]
     Indication: DIFFUSE LARGE B-CELL LYMPHOMA
     Dosage: 1.4 mg/m2, Once, on day 3
     Route: 042
     Dates: start: 20120917, end: 20120917
  6. PREDNISONE [Suspect]
     Indication: DIFFUSE LARGE B-CELL LYMPHOMA
     Dosage: 100 mg, qd, on days 3-7
     Route: 048
     Dates: start: 20120917, end: 20120921

REACTIONS (1)
  - Febrile neutropenia [Recovered/Resolved]
